FAERS Safety Report 20848634 (Version 1)
Quarter: 2022Q2

REPORT INFORMATION
  Report Type: Spontaneous
  Country: US (occurrence: None)
  Receive Date: 20220518
  Receipt Date: 20220518
  Transmission Date: 20220720
  Serious: Yes (Hospitalization)
  Sender: FDA-Public Use
  Company Number: None

PATIENT
  Age: 58 Year
  Sex: Female

DRUGS (1)
  1. AMBRISENTAN [Suspect]
     Active Substance: AMBRISENTAN
     Indication: Pulmonary hypertension
     Dosage: FREQUENCY : DAILY;?
     Route: 048
     Dates: start: 20200124

REACTIONS (5)
  - Iodine overload [None]
  - Polyuria [None]
  - Atrial fibrillation [None]
  - Cardiac failure [None]
  - Dyspnoea [None]

NARRATIVE: CASE EVENT DATE: 20220428
